FAERS Safety Report 11492105 (Version 9)
Quarter: 2016Q2

REPORT INFORMATION
  Report Type: Report from Study
  Country: JP (occurrence: JP)
  Receive Date: 20150910
  Receipt Date: 20160613
  Transmission Date: 20160815
  Serious: Yes (Hospitalization)
  Sender: FDA-Public Use
  Company Number: JP-PFIZER INC-2015177353

PATIENT
  Age: 82 Year
  Sex: Female

DRUGS (14)
  1. EDIROL [Suspect]
     Active Substance: ELDECALCITOL
     Dosage: UNK
  2. SELTOUCH [Concomitant]
     Active Substance: FELBINAC
     Route: 062
  3. ALOSENN [Concomitant]
     Active Substance: SENNA LEAF
     Dosage: UNK
     Route: 048
  4. LIMETHASON [Concomitant]
     Active Substance: DEXAMETHASONE PALMITATE
     Dosage: UNK
     Route: 042
  5. XELJANZ [Suspect]
     Active Substance: TOFACITINIB CITRATE
     Indication: RHEUMATOID ARTHRITIS
     Dosage: UNK, 2X/DAY
     Route: 048
     Dates: start: 20150218, end: 20150518
  6. RHEUMATREX [Suspect]
     Active Substance: METHOTREXATE SODIUM
     Indication: RHEUMATOID ARTHRITIS
     Dosage: 8 MG, WEEKLY
     Route: 048
     Dates: start: 2011, end: 20150522
  7. CONIEL [Concomitant]
     Active Substance: BENIDIPINE HYDROCHLORIDE
     Dosage: UNK
     Route: 048
  8. HUMIRA [Concomitant]
     Active Substance: ADALIMUMAB
     Dosage: UNK
     Dates: start: 20141024, end: 20150204
  9. TANATRIL [Concomitant]
     Active Substance: IMIDAPRIL
     Dosage: UNK
     Route: 048
  10. ISONIAZID. [Concomitant]
     Active Substance: ISONIAZID
     Indication: ANTIBIOTIC PROPHYLAXIS
     Dosage: UNK
     Dates: start: 20141024, end: 20150611
  11. ORENCIA [Suspect]
     Active Substance: ABATACEPT
     Dosage: UNK
     Dates: start: 20150907, end: 20151207
  12. FOLIAMIN [Concomitant]
     Active Substance: FOLIC ACID
     Dosage: UNK
     Route: 048
  13. ISCOTIN [Concomitant]
     Active Substance: ISONIAZID
     Dosage: UNK
     Dates: start: 20141024, end: 20150611
  14. MEDROL [Concomitant]
     Active Substance: METHYLPREDNISOLONE
     Dosage: 4 MG, DAILY
     Dates: start: 20150831

REACTIONS (5)
  - Pancytopenia [Recovered/Resolved]
  - Malaise [Recovered/Resolved]
  - Biliary tract infection [Recovered/Resolved]
  - Pyrexia [Recovered/Resolved]
  - Hypercalcaemia [Recovered/Resolved]

NARRATIVE: CASE EVENT DATE: 20150515
